FAERS Safety Report 21548093 (Version 1)
Quarter: 2022Q4

REPORT INFORMATION
  Report Type: Spontaneous
  Country: US (occurrence: None)
  Receive Date: 20221102
  Receipt Date: 20221102
  Transmission Date: 20230112
  Serious: No
  Sender: FDA-Public Use
  Company Number: None

PATIENT
  Age: 76 Year
  Sex: Female

DRUGS (1)
  1. PAXLOVID [Suspect]
     Active Substance: NIRMATRELVIR\RITONAVIR
     Dates: start: 20221028, end: 20221101

REACTIONS (3)
  - Wrong product stored [None]
  - Wrong product administered [None]
  - Product dose omission in error [None]

NARRATIVE: CASE EVENT DATE: 20221028
